FAERS Safety Report 14593482 (Version 1)
Quarter: 2018Q1

REPORT INFORMATION
  Report Type: Spontaneous
  Country: ES (occurrence: ES)
  Receive Date: 20180302
  Receipt Date: 20180302
  Transmission Date: 20180509
  Serious: Yes (Death)
  Sender: FDA-Public Use
  Company Number: ES-JNJFOC-20180235240

PATIENT
  Age: 7 Decade
  Sex: Female

DRUGS (2)
  1. TREVICTA [Suspect]
     Active Substance: PALIPERIDONE PALMITATE
     Indication: SCHIZOPHRENIA
     Route: 030
     Dates: start: 201611, end: 20170512
  2. XEPLION [Suspect]
     Active Substance: PALIPERIDONE PALMITATE
     Indication: SCHIZOPHRENIA
     Route: 030
     Dates: start: 20170512

REACTIONS (10)
  - Social avoidant behaviour [Unknown]
  - Anaemia [Unknown]
  - Poor personal hygiene [Unknown]
  - Somnolence [Unknown]
  - Sudden death [Fatal]
  - Abnormal behaviour [Unknown]
  - Blood pressure decreased [Unknown]
  - Dysarthria [Unknown]
  - Hypotonia [Unknown]
  - Limb discomfort [Unknown]

NARRATIVE: CASE EVENT DATE: 2017
